FAERS Safety Report 6163706-2 (Version None)
Quarter: 2009Q2

REPORT INFORMATION
  Report Type: 
  Country: None (occurrence: None)
  Receive Date: 20090420
  Receipt Date: 20090420
  Transmission Date: 20091009
  Serious: Yes (Hospitalization)
  Sender: FDA-Public Use
  Company Number: None

PATIENT
  Age: 61 Year
  Sex: Female
  Weight: 79.3795 kg

DRUGS (1)
  1. ACTONEL [Suspect]
     Indication: OSTEOPOROSIS
     Dosage: 5 DOSES
     Dates: start: 20081128, end: 20090406

REACTIONS (9)
  - BLOOD PRESSURE INCREASED [None]
  - CHEST DISCOMFORT [None]
  - CHEST PAIN [None]
  - DRUG EFFECT PROLONGED [None]
  - DYSPEPSIA [None]
  - EUPHORIC MOOD [None]
  - INFLUENZA LIKE ILLNESS [None]
  - POLLAKIURIA [None]
  - URINE OUTPUT INCREASED [None]
